FAERS Safety Report 23909936 (Version 1)
Quarter: 2024Q2

REPORT INFORMATION
  Report Type: Spontaneous
  Country: US (occurrence: US)
  Receive Date: 20240528
  Receipt Date: 20240528
  Transmission Date: 20240716
  Serious: Yes (Disabling)
  Sender: FDA-Public Use
  Company Number: US-BEIGENE-BGN-2024-007945

PATIENT

DRUGS (1)
  1. BRUKINSA [Suspect]
     Active Substance: ZANUBRUTINIB
     Indication: Chronic lymphocytic leukaemia
     Dosage: UNK

REACTIONS (4)
  - Rash [Recovering/Resolving]
  - Skin wound [Recovering/Resolving]
  - Skin exfoliation [Recovering/Resolving]
  - Lymphadenopathy [Unknown]
